FAERS Safety Report 9256834 (Version 1)
Quarter: 2013Q2

REPORT INFORMATION
  Report Type: Spontaneous
  Country: IT (occurrence: None)
  Receive Date: 20130423
  Receipt Date: 20130423
  Transmission Date: 20140414
  Serious: Yes (Hospitalization)
  Sender: FDA-Public Use
  Company Number: AUR-APL-2013-03255

PATIENT
  Age: 56 Year
  Sex: Male

DRUGS (5)
  1. MIRTAZAPINE (MIRTAZAPINE) [Suspect]
     Indication: PRODUCT USED FOR UNKNOWN INDICATION
     Dosage: 60 MG (30 MG, 2 IN 1 D), UNKNOWN
  2. MIRTAZAPINE (MIRTAZAPINE) [Suspect]
     Dosage: 600 MG, TOTAL, INTRAMUSCULAR
     Route: 030
     Dates: start: 20130404, end: 20130404
  3. RIVOTRIL (CLONAZEPAM) [Suspect]
     Dosage: 40 MG, TOTAL, ORAL
     Route: 048
     Dates: start: 20130404, end: 20130404
  4. AMITRIPTYLINE HYDROCHLORIDE [Concomitant]
  5. MESALAZINE (MESALAZINE) [Concomitant]

REACTIONS (3)
  - Sopor [None]
  - Intentional self-injury [None]
  - Drug administration error [None]
